FAERS Safety Report 12153845 (Version 2)
Quarter: 2016Q1

REPORT INFORMATION
  Report Type: Spontaneous
  Country: PL (occurrence: PL)
  Receive Date: 20160307
  Receipt Date: 20160310
  Transmission Date: 20160526
  Serious: Yes (Death, Hospitalization)
  Sender: FDA-Public Use
  Company Number: PL-ROCHE-1718581

PATIENT
  Age: 66 Year
  Sex: Male
  Weight: 90 kg

DRUGS (2)
  1. GAZYVARO [Suspect]
     Active Substance: OBINUTUZUMAB
     Indication: CHRONIC LYMPHOCYTIC LEUKAEMIA
     Dosage: DAY 1
     Route: 042
     Dates: start: 20160219, end: 20160219
  2. GAZYVARO [Suspect]
     Active Substance: OBINUTUZUMAB
     Dosage: DAY 2
     Route: 065
     Dates: start: 20160220, end: 20160220

REACTIONS (4)
  - Dyspnoea [Fatal]
  - Febrile neutropenia [Fatal]
  - Infusion related reaction [Recovered/Resolved]
  - Tumour lysis syndrome [Fatal]

NARRATIVE: CASE EVENT DATE: 20160219
